FAERS Safety Report 17675881 (Version 1)
Quarter: 2020Q2

REPORT INFORMATION
  Report Type: Spontaneous
  Country: US (occurrence: US)
  Receive Date: 20200416
  Receipt Date: 20200416
  Transmission Date: 20200714
  Serious: Yes (Hospitalization, Other)
  Sender: FDA-Public Use
  Company Number: US-009507513-2004USA002658

PATIENT
  Age: 68 Year
  Sex: Male
  Weight: 101 kg

DRUGS (8)
  1. ROPINIROLE. [Suspect]
     Active Substance: ROPINIROLE
     Indication: PRODUCT USED FOR UNKNOWN INDICATION
     Dosage: 6 MILLIGRAM, UNK
     Route: 065
     Dates: end: 2018
  2. RYTARY [Suspect]
     Active Substance: CARBIDOPA\LEVODOPA
     Dosage: 48.75/195 MG, ONE CAPSULE FIVE TIMES A DAY
     Route: 048
     Dates: start: 20180628, end: 20180701
  3. ROPINIROLE. [Suspect]
     Active Substance: ROPINIROLE
     Dosage: 4 MILLIGRAM, UNK
     Route: 065
     Dates: start: 2018
  4. RYTARY [Suspect]
     Active Substance: CARBIDOPA\LEVODOPA
     Indication: PARKINSON^S DISEASE
     Dosage: 36.25/145MG, THREE CAPSULES, THREE TIME A DAY
     Route: 048
     Dates: start: 20180414, end: 2018
  5. SINEMET CR [Suspect]
     Active Substance: CARBIDOPA\LEVODOPA
     Indication: PRODUCT USED FOR UNKNOWN INDICATION
     Dosage: 25/100 MG, UNK
     Route: 065
  6. AZILECT [Concomitant]
     Active Substance: RASAGILINE MESYLATE
     Indication: PRODUCT USED FOR UNKNOWN INDICATION
     Dosage: 1 MG, 1 /DAY
     Route: 065
  7. RYTARY [Suspect]
     Active Substance: CARBIDOPA\LEVODOPA
     Dosage: 36.25/145MG, TWO CAPSULES, FOUR TIMES A DAY
     Route: 048
     Dates: start: 20180503, end: 2018
  8. RYTARY [Suspect]
     Active Substance: CARBIDOPA\LEVODOPA
     Dosage: 48.75/195 MG, ONE CAPSULE, FOUR TIMES A DAY
     Route: 048
     Dates: start: 20180603, end: 201806

REACTIONS (13)
  - Loss of consciousness [Unknown]
  - Memory impairment [Unknown]
  - Hypopnoea [Unknown]
  - Asthenia [Unknown]
  - Treatment noncompliance [Unknown]
  - Diplopia [Not Recovered/Not Resolved]
  - Aggression [Unknown]
  - Nightmare [Unknown]
  - Hallucination [Unknown]
  - Blood pressure increased [Unknown]
  - Agitation [Unknown]
  - Energy increased [Unknown]
  - Sleep disorder [Unknown]

NARRATIVE: CASE EVENT DATE: 2018
